FAERS Safety Report 10035534 (Version 1)
Quarter: 2014Q1

REPORT INFORMATION
  Report Type: Spontaneous
  Country: US (occurrence: US)
  Receive Date: 20140325
  Receipt Date: 20140325
  Transmission Date: 20141002
  Serious: Yes (Other)
  Sender: FDA-Public Use
  Company Number: US-PFIZER INC-2014082521

PATIENT
  Age: 49 Year
  Sex: Female

DRUGS (5)
  1. EFFEXOR [Suspect]
     Indication: ANTIDEPRESSANT THERAPY
  2. EFFEXOR XR [Suspect]
     Indication: ANTIDEPRESSANT THERAPY
     Dosage: 150 MG, 1X/DAY
     Route: 048
  3. RITALIN [Concomitant]
     Dosage: 10 MG, 1X/DAY
  4. IBUPROFEN [Concomitant]
     Dosage: UNK
  5. MULTIVITAMINS [Concomitant]

REACTIONS (1)
  - Depression [Unknown]
